FAERS Safety Report 16471840 (Version 1)
Quarter: 2019Q2

REPORT INFORMATION
  Report Type: Report from Study
  Country: None (occurrence: US)
  Receive Date: 20190624
  Receipt Date: 20190624
  Transmission Date: 20190711
  Serious: Yes (Hospitalization)
  Sender: FDA-Public Use
  Company Number: US-ABBVIE-19K-163-2622452-00

PATIENT
  Age: 50 Year
  Sex: Female

DRUGS (3)
  1. HUMIRA [Suspect]
     Active Substance: ADALIMUMAB
     Indication: RHEUMATOID ARTHRITIS
     Route: 058
     Dates: start: 20181209, end: 201905
  2. METHOTREXATE. [Suspect]
     Active Substance: METHOTREXATE
     Indication: PRODUCT USED FOR UNKNOWN INDICATION
     Route: 065
  3. HUMIRA [Suspect]
     Active Substance: ADALIMUMAB
     Route: 058
     Dates: start: 2019

REACTIONS (12)
  - Joint injury [Recovering/Resolving]
  - Fall [Unknown]
  - Joint swelling [Recovering/Resolving]
  - Insomnia [Unknown]
  - Epistaxis [Unknown]
  - Joint stiffness [Recovering/Resolving]
  - Vision blurred [Not Recovered/Not Resolved]
  - Rhinorrhoea [Unknown]
  - Gait disturbance [Recovering/Resolving]
  - Oropharyngeal pain [Unknown]
  - Nausea [Not Recovered/Not Resolved]
  - Arthralgia [Recovering/Resolving]

NARRATIVE: CASE EVENT DATE: 201812
